FAERS Safety Report 21131097 (Version 2)
Quarter: 2022Q3

REPORT INFORMATION
  Report Type: Other
  Country: DE (occurrence: None)
  Receive Date: 20220726
  Receipt Date: 20220914
  Transmission Date: 20221027
  Serious: Yes (Other)
  Sender: FDA-Public Use
  Company Number: DE-ROCHE-2458889

PATIENT
  Age: 46 Year
  Sex: Female
  Weight: 71 kg

DRUGS (6)
  1. OCRELIZUMAB [Suspect]
     Active Substance: OCRELIZUMAB
     Indication: Relapsing multiple sclerosis
     Dosage: DATE OF MOST RECENT DOSE RECEIVED PRIOR TO EVENT ONSET: 12/APR/2019
     Route: 042
     Dates: start: 20190327
  2. OCRELIZUMAB [Suspect]
     Active Substance: OCRELIZUMAB
     Route: 042
     Dates: start: 20191025, end: 20191025
  3. LORATADINE [Concomitant]
     Active Substance: LORATADINE
     Indication: Seasonal allergy
     Route: 048
     Dates: start: 2014
  4. ZINC [Concomitant]
     Active Substance: ZINC
     Indication: Zinc deficiency
     Route: 048
     Dates: start: 2018
  5. CYANOCOBALAMIN [Concomitant]
     Active Substance: CYANOCOBALAMIN
     Indication: Anaemia
     Route: 048
     Dates: start: 2017
  6. SELENIUM [Concomitant]
     Active Substance: SELENIUM
     Indication: Nutritional supplementation
     Route: 048
     Dates: start: 2018

REACTIONS (1)
  - Sudden hearing loss [Recovered/Resolved with Sequelae]

NARRATIVE: CASE EVENT DATE: 20190929
